FAERS Safety Report 25553731 (Version 1)
Quarter: 2025Q3

REPORT INFORMATION
  Report Type: Spontaneous
  Country: EU (occurrence: EU)
  Receive Date: 20250715
  Receipt Date: 20250715
  Transmission Date: 20251021
  Serious: Yes (Life-Threatening, Other)
  Sender: AUROBINDO
  Company Number: EU-AFSSAPS-CN2025000666

PATIENT
  Age: 77 Year
  Sex: Female
  Weight: 72 kg

DRUGS (6)
  1. CAPECITABINE [Suspect]
     Active Substance: CAPECITABINE
     Indication: Cholangiocarcinoma
     Dosage: 4 GRAM, ONCE A DAY (2000MG MATIN ET SOIR 14 JOURS SUR 21)
     Route: 048
     Dates: start: 20250203, end: 20250307
  2. LEVOTHYROXINE [Concomitant]
     Active Substance: LEVOTHYROXINE
     Indication: Hypothyroidism
     Dosage: 100 MICROGRAM, ONCE A DAY (100 ?G LE MATIN)
     Route: 048
  3. Cholecalciferol cristers [Concomitant]
     Indication: Product used for unknown indication
     Route: 048
  4. BISOPROLOL [Concomitant]
     Active Substance: BISOPROLOL
     Indication: Product used for unknown indication
     Dosage: 2.5 MILLIGRAM, ONCE A DAY (1 CP DE 2.5 MG LE MATIN)
     Route: 048
  5. COVERAM [Concomitant]
     Active Substance: AMLODIPINE\PERINDOPRIL
     Indication: Product used for unknown indication
     Dosage: 5 MILLIGRAM, ONCE A DAY (1 CP LE MATIN)
     Route: 048
  6. CREON [Concomitant]
     Active Substance: PANCRELIPASE AMYLASE\PANCRELIPASE LIPASE\PANCRELIPASE PROTEASE
     Indication: Product used for unknown indication
     Dosage: 125000 INTERNATIONAL UNIT, ONCE A DAY (1 LE MATIN, 2 LE MIDI , 2 LE SOIR)
     Route: 048

REACTIONS (7)
  - Febrile bone marrow aplasia [Recovered/Resolved]
  - Septic shock [Recovered/Resolved]
  - Cardiac failure acute [Recovered/Resolved]
  - Acute kidney injury [Recovered/Resolved]
  - Drug reaction with eosinophilia and systemic symptoms [Recovered/Resolved]
  - Medication error [Recovered/Resolved]
  - Drug monitoring procedure not performed [Recovered/Resolved]

NARRATIVE: CASE EVENT DATE: 20250310
